FAERS Safety Report 6884099-9 (Version None)
Quarter: 2010Q3

REPORT INFORMATION
  Report Type: 
  Country: None (occurrence: None)
  Receive Date: 20100729
  Receipt Date: 20100714
  Transmission Date: 20110219
  Serious: No
  Sender: FDA-Public Use
  Company Number: US-B.I. PHARMACEUTICALS,INC./RIDGEFIELD-2010-BP-06104BP

PATIENT
  Age: 73 Year
  Sex: Female

DRUGS (8)
  1. CATAPRES-TTS-1 [Suspect]
     Indication: HYPERTENSION
     Dosage: 0.1 MG
     Route: 061
     Dates: start: 20100101
  2. DIOVAN [Suspect]
     Indication: HYPERTENSION
  3. CORGARD [Suspect]
     Indication: HYPERTENSION
  4. LIPITOR [Concomitant]
     Indication: BLOOD CHOLESTEROL INCREASED
  5. ZANTAC [Concomitant]
     Indication: DYSPEPSIA
  6. VALIUM [Concomitant]
  7. MACRODANTIN [Concomitant]
     Indication: CYSTITIS
  8. ASPIRIN [Concomitant]
     Indication: BLOOD CHOLESTEROL INCREASED

REACTIONS (4)
  - APPLICATION SITE PRURITUS [None]
  - APPLICATION SITE RASH [None]
  - BLOOD PRESSURE DECREASED [None]
  - MALAISE [None]
